FAERS Safety Report 9010683 (Version 1)
Quarter: 2013Q1

REPORT INFORMATION
  Report Type: Spontaneous
  Country: US (occurrence: US)
  Receive Date: 20130109
  Receipt Date: 20130109
  Transmission Date: 20140127
  Serious: Yes (Death, Hospitalization)
  Sender: FDA-Public Use
  Company Number: US-PFIZER INC-2013004321

PATIENT
  Age: 20 Year
  Sex: Male

DRUGS (6)
  1. ALPRAZOLAM [Suspect]
     Dosage: UNK
     Route: 048
  2. OXYMORPHONE [Suspect]
     Dosage: UNK
     Route: 048
  3. CITALOPRAM [Suspect]
     Dosage: UNK
     Route: 048
  4. CARISOPRODOL [Suspect]
     Dosage: UNK
     Route: 048
  5. ZOLPIDEM [Suspect]
     Dosage: UNK
     Route: 048
  6. CLONAZEPAM [Suspect]
     Dosage: UNK
     Route: 048

REACTIONS (3)
  - Drug abuse [Fatal]
  - Cardiac arrest [Fatal]
  - Respiratory arrest [Fatal]
